FAERS Safety Report 9853364 (Version 2)
Quarter: 2014Q1

REPORT INFORMATION
  Report Type: Report from Study
  Country: BD (occurrence: BD)
  Receive Date: 20140129
  Receipt Date: 20140129
  Transmission Date: 20141002
  Serious: Yes (Death, Hospitalization, Other)
  Sender: FDA-Public Use
  Company Number: PHHY2014BD007083

PATIENT
  Age: 81 Year
  Sex: Male

DRUGS (2)
  1. ACLASTA [Suspect]
     Indication: OSTEOPOROSIS
     Dosage: 5 MG IN 100 ML SOLUTION
     Route: 042
     Dates: start: 20120920
  2. ACLASTA [Suspect]
     Dosage: 5 MG IN 100 ML SOLUTION
     Route: 042
     Dates: start: 20130901

REACTIONS (3)
  - Hepatic cancer [Fatal]
  - Spinal column injury [Unknown]
  - Haemoglobin decreased [Unknown]
